FAERS Safety Report 12242039 (Version 5)
Quarter: 2016Q2

REPORT INFORMATION
  Report Type: Spontaneous
  Country: IT (occurrence: IT)
  Receive Date: 20160406
  Receipt Date: 20160503
  Transmission Date: 20160815
  Serious: Yes (Hospitalization)
  Sender: FDA-Public Use
  Company Number: IT-ELI_LILLY_AND_COMPANY-IT201603009213

PATIENT
  Age: 64 Year
  Sex: Female
  Weight: 37 kg

DRUGS (7)
  1. TAVOR (LORAZEPAM) [Concomitant]
     Active Substance: LORAZEPAM
  2. PROZAC [Suspect]
     Active Substance: FLUOXETINE HYDROCHLORIDE
     Indication: DISCOMFORT
     Dosage: 20 MG, UNKNOWN
     Route: 065
     Dates: start: 201503, end: 201507
  3. PROZAC [Interacting]
     Active Substance: FLUOXETINE HYDROCHLORIDE
     Indication: ANOREXIA NERVOSA
  4. DUROGESIC [Interacting]
     Active Substance: FENTANYL
     Indication: ABDOMINAL PAIN
     Dosage: 12 UG, EVERY HOUR
     Route: 065
  5. PROZAC [Interacting]
     Active Substance: FLUOXETINE HYDROCHLORIDE
     Indication: ABDOMINAL PAIN
     Dosage: 20 MG, UNKNOWN
     Route: 065
     Dates: start: 20160319
  6. FENTANYL. [Interacting]
     Active Substance: FENTANYL
     Indication: ABDOMINAL PAIN
     Dosage: 25 UG, EVERY HOUR
     Route: 065
  7. PROZAC [Interacting]
     Active Substance: FLUOXETINE HYDROCHLORIDE
     Indication: RETCHING

REACTIONS (12)
  - Blood potassium decreased [Recovered/Resolved]
  - Drug interaction [Unknown]
  - Colitis [Unknown]
  - Muscle contractions involuntary [Unknown]
  - Drug intolerance [Unknown]
  - Anorexia nervosa [Unknown]
  - Haemoglobin increased [Recovered/Resolved]
  - Blood electrolytes decreased [Recovered/Resolved]
  - Psychosomatic disease [Unknown]
  - Mydriasis [Unknown]
  - Off label use [Unknown]
  - Rash [Unknown]

NARRATIVE: CASE EVENT DATE: 201503
